FAERS Safety Report 8942649 (Version 1)
Quarter: 2012Q4

REPORT INFORMATION
  Report Type: 
  Country: US (occurrence: US)
  Receive Date: 20121204
  Receipt Date: 20121204
  Transmission Date: 20130627
  Serious: Yes (Death)
  Sender: FDA-Public Use
  Company Number: US-BAYER-2012-126649

PATIENT
  Age: 68 Year
  Sex: Male

DRUGS (4)
  1. ACETYLSALICYLIC ACID({=100 MG) [Suspect]
     Indication: ANTIPLATELET THERAPY
     Dosage: UNK UNK, QD
     Route: 048
  2. ACETYLSALICYLIC ACID({=100 MG) [Suspect]
     Indication: CORONARY STENT PLACEMENT
  3. METOPROLOL [Concomitant]
     Indication: CORONARY ARTERY DISEASE
     Dosage: 100 mg, QD
     Route: 048
  4. METOPROLOL [Concomitant]
     Indication: CORONARY ARTERY DISEASE
     Dosage: 2.5 mg, UNK
     Route: 042

REACTIONS (4)
  - Thrombosis in device [Fatal]
  - Acute myocardial infarction [Fatal]
  - Ventricular fibrillation [Fatal]
  - Cardiac arrest [Fatal]
